FAERS Safety Report 17406907 (Version 1)
Quarter: 2020Q1

REPORT INFORMATION
  Report Type: Spontaneous
  Country: US (occurrence: US)
  Receive Date: 20200211
  Receipt Date: 20200211
  Transmission Date: 20200409
  Serious: Yes (Hospitalization)
  Sender: FDA-Public Use
  Company Number: None

PATIENT
  Sex: Male

DRUGS (10)
  1. SILDENAFIL. [Suspect]
     Active Substance: SILDENAFIL
     Indication: PULMONARY ARTERIAL HYPERTENSION
     Route: 048
  2. ANASTROZOLE. [Concomitant]
     Active Substance: ANASTROZOLE
  3. CHOLESTYRAM [Concomitant]
     Active Substance: CHOLESTYRAMINE
  4. SPIRONOLACT [Concomitant]
     Active Substance: SPIRONOLACTONE
  5. SILDENAFIL. [Concomitant]
     Active Substance: SILDENAFIL
  6. CEFDINIR. [Concomitant]
     Active Substance: CEFDINIR
  7. TESTOST CYP [Concomitant]
     Active Substance: TESTOSTERONE CYPIONATE
  8. FLORANEX [Concomitant]
     Active Substance: LACTOBACILLUS ACIDOPHILUS\LACTOBACILLUS DELBRUECKII SUBSP. BULGARICUS
  9. FUROSEMIDE. [Concomitant]
     Active Substance: FUROSEMIDE
  10. OMEPRAZOLE. [Concomitant]
     Active Substance: OMEPRAZOLE

REACTIONS (2)
  - Therapy cessation [None]
  - Pneumonia [None]
